FAERS Safety Report 6925435-4 (Version None)
Quarter: 2010Q3

REPORT INFORMATION
  Report Type: 
  Country: None (occurrence: None)
  Receive Date: 20100816
  Receipt Date: 20100811
  Transmission Date: 20110219
  Serious: Yes (Hospitalization)
  Sender: FDA-Public Use
  Company Number: FR-ROCHE-704195

PATIENT
  Sex: Male

DRUGS (17)
  1. ROACTEMRA [Suspect]
     Indication: RHEUMATOID ARTHRITIS
     Dosage: RECEIVED 4 CYCLES, STRENGTH: 20 MG/ML. FORM: SOLUTION FOR INFUSION
     Route: 042
     Dates: start: 20100112, end: 20100413
  2. METOJECT [Suspect]
     Indication: PRODUCT USED FOR UNKNOWN INDICATION
     Dosage: STRENGTH: 10 MG/ML, FORM: INJECTABLE SOLUTION
     Route: 058
     Dates: start: 20100414, end: 20100505
  3. MABTHERA [Concomitant]
     Indication: RHEUMATOID ARTHRITIS
     Dosage: RECEIVED 1 CYCLE, FORM: SOLUTION FOR INFUSION
     Route: 042
     Dates: start: 20090901, end: 20090901
  4. ZELITREX [Concomitant]
     Indication: ANTIVIRAL PROPHYLAXIS
     Route: 048
     Dates: start: 20100510, end: 20100516
  5. RABEPRAZOLE SODIUM [Concomitant]
     Route: 048
     Dates: start: 20100510, end: 20100516
  6. PLAVIX [Concomitant]
     Route: 048
  7. ASPEGIC 1000 [Concomitant]
     Route: 048
  8. ALDACTONE [Concomitant]
     Route: 048
  9. LASILIX RETARD [Concomitant]
     Route: 048
  10. PERINDOPRIL [Concomitant]
     Route: 048
  11. PREDNISONE [Concomitant]
  12. TRINITRINE [Concomitant]
  13. FORADIL [Concomitant]
     Dosage: ROUTE:INHALATION IN THE EVENING. FORM:POWDER FOR INHALATION IN CAPSULE.
     Route: 055
  14. FLIXOTIDE [Concomitant]
     Dosage: DRUG NAME: FLIXOTIDE DISCUS, FORM:POWDER FOR ORAL INHALATION
     Route: 055
  15. ACETAMINOPHEN [Concomitant]
     Dosage: AT REQUEST PER 6 HOURS
  16. TRAMADOL HCL [Concomitant]
     Dosage: AT REQUEST, PER 6 HOURS MAXIMUM
  17. CACIT D3 [Concomitant]

REACTIONS (9)
  - AGRANULOCYTOSIS [None]
  - ANAEMIA [None]
  - BLOOD CULTURE POSITIVE [None]
  - ERYTHROBLASTOSIS [None]
  - HYPOALBUMINAEMIA [None]
  - PARVOVIRUS B19 TEST POSITIVE [None]
  - PERICARDITIS [None]
  - THROMBOCYTOPENIA [None]
  - TREATMENT FAILURE [None]
